FAERS Safety Report 6005577-0 (Version None)
Quarter: 2008Q4

REPORT INFORMATION
  Report Type: 
  Country: None (occurrence: None)
  Receive Date: 20081216
  Receipt Date: 20081216
  Transmission Date: 20090506
  Serious: Yes (Life-Threatening, Other)
  Sender: FDA-Public Use
  Company Number: None

PATIENT
  Age: 60 Year
  Sex: Female
  Weight: 99.7913 kg

DRUGS (1)
  1. DURAGESIC-50 [Suspect]
     Indication: PAIN
     Dosage: EVERY 3 DAYS TOP
     Route: 061
     Dates: start: 20030101, end: 20081214

REACTIONS (16)
  - ABDOMINAL PAIN UPPER [None]
  - ANXIETY [None]
  - CARDIAC DISORDER [None]
  - CEREBROVASCULAR ACCIDENT [None]
  - COLD SWEAT [None]
  - CONSTIPATION [None]
  - CONTUSION [None]
  - EYE DISORDER [None]
  - FEAR [None]
  - HAEMORRHAGE [None]
  - HYPOVENTILATION [None]
  - MYOCARDIAL INFARCTION [None]
  - PAIN [None]
  - RENAL DISORDER [None]
  - SLEEP APNOEA SYNDROME [None]
  - SLEEP DISORDER [None]
